FAERS Safety Report 14431677 (Version 1)
Quarter: 2018Q1

REPORT INFORMATION
  Report Type: Spontaneous
  Country: US (occurrence: US)
  Receive Date: 20180124
  Receipt Date: 20180124
  Transmission Date: 20180509
  Serious: No
  Sender: FDA-Public Use
  Company Number: US-009507513-1801USA006636

PATIENT
  Age: 31 Year
  Sex: Female

DRUGS (3)
  1. JANUMET XR [Suspect]
     Active Substance: METFORMIN HYDROCHLORIDE\SITAGLIPTIN PHOSPHATE
     Dosage: 1 TABLET A DAY
     Route: 048
     Dates: start: 201801, end: 20180116
  2. JANUMET XR [Suspect]
     Active Substance: METFORMIN HYDROCHLORIDE\SITAGLIPTIN PHOSPHATE
     Indication: GLYCOSYLATED HAEMOGLOBIN
     Dosage: 1 TABLET A DAY
     Route: 048
     Dates: start: 201707, end: 201710
  3. GLIPIZIDE. [Suspect]
     Active Substance: GLIPIZIDE
     Indication: GLYCOSYLATED HAEMOGLOBIN
     Dosage: UNK
     Dates: end: 20180103

REACTIONS (3)
  - Glycosylated haemoglobin increased [Recovering/Resolving]
  - Inappropriate schedule of drug administration [Unknown]
  - Heart rate increased [Recovering/Resolving]

NARRATIVE: CASE EVENT DATE: 201707
